FAERS Safety Report 8588737-4 (Version None)
Quarter: 2012Q3

REPORT INFORMATION
  Report Type: 
  Country: None (occurrence: None)
  Receive Date: 20120813
  Receipt Date: 20120806
  Transmission Date: 20120928
  Serious: Yes (Other)
  Sender: FDA-Public Use
  Company Number: PHHY2012VE069330

PATIENT
  Sex: Female

DRUGS (5)
  1. ZOLEDRONOC ACID [Suspect]
     Dosage: 5 MG, UNK
     Dates: start: 20111002
  2. ZOLEDRONOC ACID [Suspect]
     Dosage: 5 MG, UNK
     Route: 042
     Dates: start: 20120301
  3. APRONAX [Concomitant]
     Indication: PAIN
     Route: 048
  4. COLFENE [Concomitant]
     Indication: PAIN
     Route: 048
  5. ZOLEDRONOC ACID [Suspect]
     Indication: OSTEOPOROSIS
     Dosage: 5 MG, UNK
     Route: 042
     Dates: start: 20100909

REACTIONS (4)
  - FALL [None]
  - HIP FRACTURE [None]
  - ARTHRALGIA [None]
  - BACK PAIN [None]
